FAERS Safety Report 19714088 (Version 2)
Quarter: 2021Q4

REPORT INFORMATION
  Report Type: Spontaneous
  Country: JP (occurrence: JP)
  Receive Date: 20210818
  Receipt Date: 20211007
  Transmission Date: 20220303
  Serious: Yes (Other)
  Sender: FDA-Public Use
  Company Number: NVSJ2021JP012054

PATIENT
  Age: 49 Year
  Sex: Female

DRUGS (20)
  1. GILENYA [Suspect]
     Active Substance: FINGOLIMOD HYDROCHLORIDE
     Indication: Multiple sclerosis relapse prophylaxis
     Dosage: 0.5 MG
     Route: 048
     Dates: start: 20210721
  2. GILENYA [Suspect]
     Active Substance: FINGOLIMOD HYDROCHLORIDE
     Dosage: 0.5 MG, QOD
     Route: 048
     Dates: start: 20210807
  3. PREDNISOLONE [Concomitant]
     Active Substance: PREDNISOLONE
     Indication: Multiple sclerosis relapse
     Dosage: 30 MG, QD
     Route: 048
     Dates: start: 20210714, end: 20210723
  4. PREDNISOLONE [Concomitant]
     Active Substance: PREDNISOLONE
     Dosage: 25 MG, QD
     Route: 048
     Dates: start: 20210724, end: 20210803
  5. PREDNISOLONE [Concomitant]
     Active Substance: PREDNISOLONE
     Dosage: 20 MG, QD
     Route: 048
     Dates: start: 20210804, end: 20210810
  6. PREDNISOLONE [Concomitant]
     Active Substance: PREDNISOLONE
     Dosage: 15 MG, QD
     Route: 048
     Dates: start: 20210811, end: 20210818
  7. PREDNISOLONE [Concomitant]
     Active Substance: PREDNISOLONE
     Dosage: 10 MG, QD
     Route: 048
     Dates: start: 20210819, end: 20210825
  8. PREDNISOLONE [Concomitant]
     Active Substance: PREDNISOLONE
     Dosage: 5 MG, QD
     Route: 048
     Dates: start: 20210826, end: 20210901
  9. ACETAMINOPHEN\TRAMADOL HYDROCHLORIDE [Concomitant]
     Active Substance: ACETAMINOPHEN\TRAMADOL HYDROCHLORIDE
     Indication: Analgesic therapy
     Dosage: 1 DF(TRAMADOL HYDROCHLORIDE 37.5 MG/ ACETAMINOPHEN 325 MG), BID
     Route: 048
     Dates: start: 20161024
  10. LOXOPROFEN SODIUM [Concomitant]
     Active Substance: LOXOPROFEN SODIUM
     Indication: Analgesic therapy
     Dosage: 60 MG, TID
     Route: 048
     Dates: start: 20130810
  11. LYRICA [Concomitant]
     Active Substance: PREGABALIN
     Indication: Neuralgia
     Dosage: 150 MG, BID
     Route: 048
     Dates: start: 20130810
  12. MEXITIL [Concomitant]
     Active Substance: MEXILETINE HYDROCHLORIDE
     Indication: Hypoaesthesia
     Dosage: 50 MG, BID
     Route: 048
     Dates: start: 20150929
  13. CLONAZEPAM [Concomitant]
     Active Substance: CLONAZEPAM
     Indication: Hypoaesthesia
     Dosage: 0.5 MG, QD
     Route: 048
     Dates: start: 20150821
  14. MYONAL [Concomitant]
     Indication: Paralysis
     Dosage: 50 MG, BID
     Route: 048
     Dates: start: 20160122
  15. METHYLCOBALAMIN [Concomitant]
     Active Substance: METHYLCOBALAMIN
     Indication: Neuropathy peripheral
     Dosage: 0.5 MG, BID
     Route: 048
     Dates: start: 20130810
  16. LANSOPRAZOLE [Concomitant]
     Active Substance: LANSOPRAZOLE
     Indication: Gastric ulcer
     Dosage: 15 MG, QD
     Route: 048
     Dates: start: 20180413
  17. MOSAPRIDE CITRATE [Concomitant]
     Active Substance: MOSAPRIDE CITRATE
     Indication: Chronic gastritis
     Dosage: 5 MG, BID
     Route: 048
     Dates: start: 20130810
  18. BIO-THREE [Concomitant]
     Active Substance: HERBALS
     Indication: Bowel movement irregularity
     Dosage: 1 DF, TID
     Route: 048
     Dates: start: 20181120
  19. MAGNESIUM OXIDE [Concomitant]
     Active Substance: MAGNESIUM OXIDE
     Indication: Constipation
     Dosage: 330 MG, BID
     Route: 048
     Dates: start: 20210115
  20. ELOBIXIBAT [Concomitant]
     Active Substance: ELOBIXIBAT
     Indication: Constipation
     Dosage: 10 MG, QD
     Route: 048
     Dates: start: 20200605

REACTIONS (3)
  - Lymphocyte count decreased [Not Recovered/Not Resolved]
  - Hepatic function abnormal [Not Recovered/Not Resolved]
  - Prescribed underdose [Unknown]

NARRATIVE: CASE EVENT DATE: 20210806
